FAERS Safety Report 7312324-9 (Version None)
Quarter: 2011Q1

REPORT INFORMATION
  Report Type: 
  Country: None (occurrence: None)
  Receive Date: 20110224
  Receipt Date: 20110221
  Transmission Date: 20110831
  Serious: Yes (Hospitalization)
  Sender: FDA-Public Use
  Company Number: Z0007600A

PATIENT
  Sex: Female
  Weight: 63.1 kg

DRUGS (2)
  1. OFATUMUMAB [Suspect]
     Route: 042
     Dates: start: 20110112
  2. CHLORAMBUCIL [Suspect]
     Dosage: 10MGM2 PER DAY
     Route: 048
     Dates: start: 20110112

REACTIONS (1)
  - FEBRILE NEUTROPENIA [None]
